FAERS Safety Report 16296543 (Version 3)
Quarter: 2019Q2

REPORT INFORMATION
  Report Type: Spontaneous
  Country: US (occurrence: US)
  Receive Date: 20190510
  Receipt Date: 20190605
  Transmission Date: 20190711
  Serious: No
  Sender: FDA-Public Use
  Company Number: US-PFIZER INC-2019195997

PATIENT
  Age: 76 Year
  Sex: Female
  Weight: 67.13 kg

DRUGS (2)
  1. TOVIAZ [Suspect]
     Active Substance: FESOTERODINE FUMARATE
     Dosage: 4 MG, UNK (CUT HER DOSE IN HALF AND ONLY TAKE 4 MILLIGRAMS)
  2. TOVIAZ [Suspect]
     Active Substance: FESOTERODINE FUMARATE
     Indication: BLADDER DISORDER
     Dosage: 8 MG, 1X/DAY (ONCE A DAY IN THE EVENING)
     Route: 048

REACTIONS (2)
  - Drug ineffective [Unknown]
  - Intentional product use issue [Unknown]
